FAERS Safety Report 5226527-0 (Version None)
Quarter: 2006Q4

REPORT INFORMATION
  Report Type: 
  Country: None (occurrence: None)
  Receive Date: 20061201
  Receipt Date: 20061018
  Transmission Date: 20070319
  Serious: No
  Sender: FDA-Public Use
  Company Number: US200609005419

PATIENT
  Age: 56 Year
  Sex: Female
  Weight: 63.5 kg

DRUGS (13)
  1. CYMBALTA [Suspect]
     Indication: NEURALGIA
     Dosage: SEE IMAGE
     Route: 048
     Dates: start: 20060101, end: 20060101
  2. KLONOPIN [Concomitant]
  3. PROVIGIL [Concomitant]
  4. NEURONTIN [Concomitant]
  5. SYNTHROID [Concomitant]
  6. ALPHA LIPOIC ACID (THIOCTIC ACID) [Concomitant]
  7. IMITREX [Concomitant]
  8. PRILOSEC [Concomitant]
  9. CYTOMEL [Concomitant]
  10. CALCIUM (CALCIUM) [Concomitant]
  11. VITAMIN D [Concomitant]
  12. PHENOBARBITAL TAB [Concomitant]
  13. GLUCOSAMINE W/CHONDROITIN (CHONDROITIN SULFATE, GLUCOSAMINE) [Concomitant]

REACTIONS (3)
  - CHILLS [None]
  - DRUG WITHDRAWAL SYNDROME [None]
  - DYSPNOEA [None]
